FAERS Safety Report 9702111 (Version 1)
Quarter: 2013Q4

REPORT INFORMATION
  Report Type: Spontaneous
  Country: US (occurrence: None)
  Receive Date: 20131119
  Receipt Date: 20131119
  Transmission Date: 20140711
  Serious: Yes (Life-Threatening, Hospitalization)
  Sender: FDA-Public Use
  Company Number: UTC-040573

PATIENT
  Age: 8 Month
  Sex: Male

DRUGS (1)
  1. REMODULIN [Suspect]
     Dosage: 748.8 UG/KG(0.52 UG/KG, 1 IN 1)
     Route: 042

REACTIONS (7)
  - Vomiting [None]
  - Rhinovirus infection [None]
  - Pulmonary arterial hypertension [None]
  - Overdose [None]
  - Irritability [None]
  - Agitation [None]
  - Retching [None]
